FAERS Safety Report 22293789 (Version 2)
Quarter: 2023Q2

REPORT INFORMATION
  Report Type: Spontaneous
  Country: US (occurrence: US)
  Receive Date: 20230508
  Receipt Date: 20230516
  Transmission Date: 20230722
  Serious: Yes (Hospitalization, Other)
  Sender: FDA-Public Use
  Company Number: US-MYLANLABS-2022M1113457

PATIENT
  Age: 4 Month
  Sex: Male
  Weight: 6 kg

DRUGS (5)
  1. HYDROCORTISONE [Suspect]
     Active Substance: HYDROCORTISONE
     Dosage: STRESS DOSE STEROIDS
  2. VECURONIUM BROMIDE [Suspect]
     Active Substance: VECURONIUM BROMIDE
     Dosage: 0.3 MG/KG Q1H
  3. VECURONIUM BROMIDE [Suspect]
     Active Substance: VECURONIUM BROMIDE
     Dosage: 0.06 MG/KG Q1H
  4. FENTANYL [Concomitant]
     Active Substance: FENTANYL
     Indication: Analgesic therapy
     Dosage: 2 UG/KG, QH TITRATED
  5. FENTANYL [Concomitant]
     Active Substance: FENTANYL
     Indication: Sedation
     Dosage: CONTINUOUS

REACTIONS (4)
  - Neuromuscular block prolonged [Recovered/Resolved]
  - Hypotonia [Recovered/Resolved]
  - Areflexia [Recovered/Resolved]
  - Drug interaction [Unknown]
